FAERS Safety Report 19303622 (Version 1)
Quarter: 2021Q2

REPORT INFORMATION
  Report Type: Spontaneous
  Country: GB (occurrence: GB)
  Receive Date: 20210525
  Receipt Date: 20210525
  Transmission Date: 20210717
  Serious: Yes (Disabling)
  Sender: FDA-Public Use
  Company Number: GB-MYLANLABS-2021M1030180

PATIENT
  Age: 68 Year
  Sex: Male

DRUGS (2)
  1. ATORVASTATIN [Suspect]
     Active Substance: ATORVASTATIN
     Indication: ISCHAEMIC STROKE
     Dosage: 80 MILLIGRAM, QD
     Route: 048
     Dates: start: 20210325, end: 20210517
  2. CLOPIDOGREL                        /01220704/ [Suspect]
     Active Substance: CLOPIDOGREL BESILATE
     Indication: PRODUCT USED FOR UNKNOWN INDICATION
     Dosage: 75 MILLIGRAM, QD

REACTIONS (7)
  - Nocturia [Unknown]
  - Chromaturia [Unknown]
  - Back pain [Unknown]
  - Fall [Unknown]
  - Dysuria [Unknown]
  - Muscle tightness [Unknown]
  - Myalgia [Unknown]

NARRATIVE: CASE EVENT DATE: 20210401
